FAERS Safety Report 9900051 (Version 2)
Quarter: 2014Q2

REPORT INFORMATION
  Report Type: Spontaneous
  Country: US (occurrence: US)
  Receive Date: 20140214
  Receipt Date: 20140515
  Transmission Date: 20141212
  Serious: No
  Sender: FDA-Public Use
  Company Number: US-VIVUS-2014V1000040

PATIENT
  Sex: Female
  Weight: 71.28 kg

DRUGS (6)
  1. QSYMIA 7.5MG/46MG [Suspect]
     Indication: WEIGHT DECREASED
     Route: 048
     Dates: start: 201312
  2. QSYMIA 3.75MG/23MG [Suspect]
     Indication: WEIGHT DECREASED
     Route: 048
     Dates: start: 201311
  3. EVISTA [Concomitant]
     Indication: BONE DISORDER
     Dosage: STARTED SEVERAL YEARS AGO
     Route: 048
  4. VITAMIN E [Concomitant]
     Indication: VITAMIN SUPPLEMENTATION
     Dosage: STARTED THREE YEARS AGO
     Route: 048
     Dates: start: 2011
  5. VITAMIN D3 [Concomitant]
     Indication: VITAMIN SUPPLEMENTATION
     Dosage: STARTED THREE-FOUR YEARS AGO
     Route: 048
  6. CALCIUM [Concomitant]
     Indication: VITAMIN SUPPLEMENTATION
     Dosage: STARTED TEN YEARS AGO
     Route: 048
     Dates: start: 2004

REACTIONS (5)
  - Balance disorder [Not Recovered/Not Resolved]
  - Visual impairment [Not Recovered/Not Resolved]
  - Dry eye [Recovering/Resolving]
  - Back pain [Recovered/Resolved]
  - Neck pain [Not Recovered/Not Resolved]
